FAERS Safety Report 21771739 (Version 2)
Quarter: 2023Q1

REPORT INFORMATION
  Report Type: Report from Study
  Country: US (occurrence: US)
  Receive Date: 20221223
  Receipt Date: 20230109
  Transmission Date: 20230418
  Serious: Yes (Other)
  Sender: FDA-Public Use
  Company Number: US-GLAXOSMITHKLINE-US2021AMR070819

PATIENT

DRUGS (3)
  1. NIRAPARIB [Suspect]
     Active Substance: NIRAPARIB
     Indication: Malignant peritoneal neoplasm
     Dosage: 200 MG, QD
     Route: 048
     Dates: start: 20210320
  2. NIRAPARIB [Suspect]
     Active Substance: NIRAPARIB
     Indication: Breast cancer
     Dosage: 300 MG, QD, W/O FOOD
     Route: 048
     Dates: start: 20210824
  3. NIRAPARIB [Suspect]
     Active Substance: NIRAPARIB
     Dosage: 200 MG, QD

REACTIONS (16)
  - Malignant neoplasm progression [Not Recovered/Not Resolved]
  - Recurrent cancer [Unknown]
  - Sleep disorder [Not Recovered/Not Resolved]
  - Constipation [Recovered/Resolved]
  - Blood pressure increased [Not Recovered/Not Resolved]
  - Insomnia [Not Recovered/Not Resolved]
  - Hyperhidrosis [Not Recovered/Not Resolved]
  - Dyspnoea exertional [Not Recovered/Not Resolved]
  - Nausea [Recovered/Resolved]
  - Haemoptysis [Unknown]
  - Paranasal sinus haemorrhage [Unknown]
  - Carbohydrate antigen 125 increased [Unknown]
  - Spinal pain [Unknown]
  - Off label use [Unknown]
  - Drug monitoring procedure not performed [Unknown]
  - Drug ineffective [Not Recovered/Not Resolved]
